FAERS Safety Report 24777454 (Version 2)
Quarter: 2024Q4

REPORT INFORMATION
  Report Type: Spontaneous
  Country: US (occurrence: US)
  Receive Date: 20241226
  Receipt Date: 20241231
  Transmission Date: 20250115
  Serious: No
  Sender: MYLAN
  Company Number: US-MYLANLABS-2024M1114903

PATIENT
  Age: 71 Year
  Sex: Female

DRUGS (1)
  1. BREYNA [Suspect]
     Active Substance: BUDESONIDE\FORMOTEROL FUMARATE
     Indication: Product used for unknown indication
     Dosage: BID (TWICE DAILY MORNING AND EVENING)
     Route: 055

REACTIONS (3)
  - Wrong technique in product usage process [Unknown]
  - Device malfunction [Unknown]
  - Device delivery system issue [Unknown]

NARRATIVE: CASE EVENT DATE: 20241212
